FAERS Safety Report 14542007 (Version 1)
Quarter: 2018Q1

REPORT INFORMATION
  Report Type: Spontaneous
  Country: US (occurrence: US)
  Receive Date: 20180216
  Receipt Date: 20180216
  Transmission Date: 20180509
  Serious: Yes (Disabling, Other)
  Sender: FDA-Public Use
  Company Number: US-OTSUKA-DJ20122875

PATIENT

DRUGS (2)
  1. ABILIFY [Suspect]
     Active Substance: ARIPIPRAZOLE
     Indication: DEPRESSION
     Route: 065
  2. ABILIFY [Suspect]
     Active Substance: ARIPIPRAZOLE
     Indication: BIPOLAR DISORDER

REACTIONS (4)
  - Tooth disorder [Unknown]
  - Physical disability [Unknown]
  - Pain [Unknown]
  - Hypoaesthesia [Unknown]
